FAERS Safety Report 12740494 (Version 1)
Quarter: 2016Q3

REPORT INFORMATION
  Report Type: Report from Study
  Country: US (occurrence: US)
  Receive Date: 20160913
  Receipt Date: 20160913
  Transmission Date: 20161109
  Serious: Yes (Death, Hospitalization)
  Sender: FDA-Public Use
  Company Number: US-TEVA-692471USA

PATIENT
  Age: 55 Year
  Sex: Male
  Weight: 119 kg

DRUGS (8)
  1. PIROXICAM. [Suspect]
     Active Substance: PIROXICAM
     Dates: start: 20150417, end: 20150501
  2. GS-6624 VS PLACEBO SIMTUZUMAB [Suspect]
     Active Substance: SIMTUZUMAB
     Indication: IDIOPATHIC PULMONARY FIBROSIS
     Dosage: 17.8571 MILLIGRAM DAILY;
     Route: 048
     Dates: start: 20150113, end: 20150505
  3. HOLOXAN (IFOSFAMIDE) [Suspect]
     Active Substance: IFOSFAMIDE
     Indication: PRODUCT USED FOR UNKNOWN INDICATION
     Dosage: HIGH DOSE
     Route: 065
  4. BETAMETHASONE DIPROPIONATE. [Concomitant]
     Active Substance: BETAMETHASONE DIPROPIONATE
  5. SALBUTAMOL [Concomitant]
     Active Substance: ALBUTEROL
     Dates: start: 20150110
  6. PIRFENIDONE [Concomitant]
     Active Substance: PIRFENIDONE
     Dates: start: 20150507
  7. PANTOPRAZOL [Concomitant]
     Active Substance: PANTOPRAZOLE SODIUM
  8. CODEINE PHOSPHATE [Concomitant]
     Active Substance: CODEINE PHOSPHATE
     Dates: start: 20150108

REACTIONS (4)
  - Vasculitis [Fatal]
  - Glomerulonephritis [Fatal]
  - Pneumonia cytomegaloviral [Fatal]
  - Pulmonary alveolar haemorrhage [Fatal]

NARRATIVE: CASE EVENT DATE: 20150614
